FAERS Safety Report 9234630 (Version 1)
Quarter: 2013Q1

REPORT INFORMATION
  Report Type: Spontaneous
  Country: US (occurrence: None)
  Receive Date: 20121031
  Receipt Date: 20121031
  Transmission Date: 20140127
  Serious: Yes (Other)
  Sender: FDA-Public Use
  Company Number: PHEH2012US013293

PATIENT
  Age: 60 Year
  Sex: Female
  Weight: 70.76 kg

DRUGS (11)
  1. GILENYA (FTY) CAPSULE, 0.5MG [Suspect]
     Indication: MULTIPLE SCLEROSIS
     Route: 048
     Dates: start: 20110715
  2. SYNTHROID (LEVOTHYROXINE SODIUM) 112 UG [Concomitant]
  3. ESTRADIOL (ESTRADIOL) (GEL) [Concomitant]
  4. DIOVAN HCT (HYDROCHLOROTHIAZIDE, VALSARTAN) [Concomitant]
  5. CARVEDILOL (CARVEDILOL) [Concomitant]
  6. CYMBALTA (DULOXETINE HYDROCHLORIDE) [Concomitant]
  7. BACLOFEN (BACLOFEN) [Concomitant]
  8. MULTIVITAMINS (ASCORBIC ACID, ERGOCALCIFEROL, FOLIC ACID, NICOTINAMIDE, PANTHENOL, RETINOL, RIBOFLAVIN, THIAMINE, HYDROCHLORIDE) [Concomitant]
  9. OMEGA 3 FISH OIL (FISH OIL) [Concomitant]
  10. ALEVE (NAPROXEN SODIUM) [Concomitant]
  11. AMLODIPINE (AMLODIPINE) [Concomitant]

REACTIONS (11)
  - Lymphopenia [None]
  - CD4/CD8 ratio increased [None]
  - Malaise [None]
  - Inappropriate schedule of drug administration [None]
  - Upper respiratory tract infection [None]
  - Laryngitis [None]
  - White blood cell count decreased [None]
  - Pharyngitis [None]
  - CD4 lymphocytes decreased [None]
  - CD8 lymphocytes decreased [None]
  - Nasopharyngitis [None]
